FAERS Safety Report 20300150 (Version 1)
Quarter: 2022Q1

REPORT INFORMATION
  Report Type: Spontaneous
  Country: US (occurrence: US)
  Receive Date: 20220105
  Receipt Date: 20220105
  Transmission Date: 20220423
  Serious: Yes (Hospitalization)
  Sender: FDA-Public Use
  Company Number: US-PFM-2021-12722

PATIENT
  Sex: Male
  Weight: 16.59 kg

DRUGS (1)
  1. HEMANGEOL [Suspect]
     Active Substance: PROPRANOLOL HYDROCHLORIDE
     Indication: Haemangioma
     Dosage: 6.5 ML BY MOUTH 2 TIMES DAILY
     Route: 048

REACTIONS (1)
  - Hospitalisation [Unknown]
